FAERS Safety Report 25647071 (Version 2)
Quarter: 2025Q3

REPORT INFORMATION
  Report Type: Spontaneous
  Country: US (occurrence: US)
  Receive Date: 20250806
  Receipt Date: 20250903
  Transmission Date: 20251021
  Serious: No
  Sender: BOEHRINGER INGELHEIM
  Company Number: US-Komodo Health-a23aa000009GyXiAAK

PATIENT
  Sex: Male

DRUGS (1)
  1. SPIRIVA RESPIMAT [Suspect]
     Active Substance: TIOTROPIUM BROMIDE
     Indication: Emphysema

REACTIONS (4)
  - Choking [Unknown]
  - Dyspnoea [Unknown]
  - Drug delivery system issue [Unknown]
  - Device colour issue [Unknown]
